FAERS Safety Report 16854687 (Version 1)
Quarter: 2019Q3

REPORT INFORMATION
  Report Type: Spontaneous
  Country: US (occurrence: US)
  Receive Date: 20190926
  Receipt Date: 20190926
  Transmission Date: 20191005
  Serious: No
  Sender: FDA-Public Use
  Company Number: US-BION-007392

PATIENT
  Age: 39 Year
  Sex: Female
  Weight: 83.46 kg

DRUGS (1)
  1. BION PHARMA^S BEXAROTENE UNKNOWN PRODUCT [Suspect]
     Active Substance: BEXAROTENE
     Indication: NON-HODGKIN^S LYMPHOMA
     Dosage: STRENGTH: 75 MG, 4 TIMES A DAY FOR 1 MONTH
     Route: 048

REACTIONS (4)
  - Product physical consistency issue [Not Recovered/Not Resolved]
  - Product dose omission [Not Recovered/Not Resolved]
  - Accidental exposure to product [Not Recovered/Not Resolved]
  - Product leakage [Not Recovered/Not Resolved]
